FAERS Safety Report 7393735-2 (Version None)
Quarter: 2011Q2

REPORT INFORMATION
  Report Type: 
  Country: None (occurrence: None)
  Receive Date: 20110405
  Receipt Date: 20110324
  Transmission Date: 20111010
  Serious: Yes (Hospitalization)
  Sender: FDA-Public Use
  Company Number: US-JNJFOC-20110311623

PATIENT
  Sex: Female
  Weight: 60.78 kg

DRUGS (6)
  1. HORMONE REPLACEMENT [Concomitant]
     Indication: HORMONE REPLACEMENT THERAPY
     Route: 048
  2. ALL OTHER THERAPEUTIC PRODUCTS [Concomitant]
     Indication: RHEUMATOID ARTHRITIS
     Route: 048
  3. CELEBREX [Concomitant]
     Indication: RHEUMATOID ARTHRITIS
     Route: 048
  4. PLAQUENIL [Concomitant]
     Indication: RHEUMATOID ARTHRITIS
     Route: 048
  5. SIMPONI [Suspect]
     Indication: RHEUMATOID ARTHRITIS
     Route: 058
  6. CARAFATE [Concomitant]
     Indication: GASTRIC DISORDER
     Route: 048

REACTIONS (5)
  - SENSORY DISTURBANCE [None]
  - ANEURYSM [None]
  - CEREBROVASCULAR ACCIDENT [None]
  - SKIN HAEMORRHAGE [None]
  - SYNCOPE [None]
